FAERS Safety Report 11144547 (Version 2)
Quarter: 2015Q2

REPORT INFORMATION
  Report Type: Spontaneous
  Country: US (occurrence: US)
  Receive Date: 20150526
  Receipt Date: 20150616
  Transmission Date: 20150821
  Serious: Yes (Hospitalization, Other)
  Sender: FDA-Public Use
  Company Number: US-ELI_LILLY_AND_COMPANY-US201505005925

PATIENT
  Age: 68 Year
  Sex: Female
  Weight: 87.08 kg

DRUGS (1)
  1. HUMALOG [Suspect]
     Active Substance: INSULIN LISPRO
     Indication: TYPE 1 DIABETES MELLITUS
     Dosage: UNK, PRN
     Route: 058

REACTIONS (11)
  - Mental status changes [Unknown]
  - Incontinence [Unknown]
  - Blood glucose increased [Unknown]
  - Musculoskeletal disorder [Unknown]
  - Amnesia [Not Recovered/Not Resolved]
  - Asthenia [Unknown]
  - Glycosylated haemoglobin increased [Unknown]
  - Glycosylated haemoglobin increased [Unknown]
  - Faecal incontinence [Unknown]
  - Cerebrovascular accident [Unknown]
  - Cognitive disorder [Unknown]

NARRATIVE: CASE EVENT DATE: 2004
